FAERS Safety Report 6267462-9 (Version None)
Quarter: 2009Q3

REPORT INFORMATION
  Report Type: 
  Country: None (occurrence: None)
  Receive Date: 20090714
  Receipt Date: 20090708
  Transmission Date: 20100115
  Serious: Yes (Other)
  Sender: FDA-Public Use
  Company Number: US-AMGEN-QUU349005

PATIENT
  Sex: Female
  Weight: 109.4 kg

DRUGS (11)
  1. ENBREL [Suspect]
     Indication: RHEUMATOID ARTHRITIS
     Route: 058
     Dates: start: 20060918, end: 20090507
  2. ENBREL [Suspect]
     Indication: PSORIATIC ARTHROPATHY
  3. MINOCIN [Concomitant]
     Route: 048
  4. METHOTREXATE [Concomitant]
     Route: 048
  5. AMBIEN [Concomitant]
  6. CELEBREX [Concomitant]
  7. FENTANYL [Concomitant]
  8. FLEXERIL [Concomitant]
  9. TRENTAL [Concomitant]
  10. VICODIN [Concomitant]
  11. ZOLOFT [Concomitant]

REACTIONS (1)
  - OPTIC NEUROPATHY [None]
